FAERS Safety Report 9753253 (Version 2)
Quarter: 2013Q4

REPORT INFORMATION
  Report Type: Spontaneous
  Country: US (occurrence: US)
  Receive Date: 20131213
  Receipt Date: 20131213
  Transmission Date: 20140711
  Serious: No
  Sender: FDA-Public Use
  Company Number: US-GILEAD-2010-0026925

PATIENT
  Age: 53 Year
  Sex: Female
  Weight: 74.84 kg

DRUGS (16)
  1. LETAIRIS [Suspect]
     Indication: PULMONARY ARTERIAL HYPERTENSION
     Route: 048
     Dates: start: 20091028
  2. ASPIRIN [Concomitant]
  3. ISORDIL [Concomitant]
     Indication: HYPERTENSION
  4. ALBUTEROL [Concomitant]
  5. CLARITIN [Concomitant]
  6. PROVENTIL [Concomitant]
     Indication: ASTHMA
     Dates: start: 20090708
  7. SYMBICORT [Concomitant]
     Indication: ASTHMA
     Dates: start: 20090708
  8. NASONEX [Concomitant]
     Indication: HYPERSENSITIVITY
     Dates: start: 20090708
  9. KLONOPIN [Concomitant]
     Dates: start: 20091125
  10. CELEBREX [Concomitant]
  11. PROZAC [Concomitant]
  12. NEXIUM [Concomitant]
     Indication: GASTROOESOPHAGEAL REFLUX DISEASE
  13. CALCIUM [Concomitant]
  14. VITAMIN D3 [Concomitant]
  15. B COMPLEX [Concomitant]
  16. MULTIVITAMIN [Concomitant]

REACTIONS (3)
  - Pain in extremity [Recovering/Resolving]
  - Restless legs syndrome [Not Recovered/Not Resolved]
  - Fatigue [Unknown]
